FAERS Safety Report 8803554 (Version 1)
Quarter: 2012Q4

REPORT INFORMATION
  Report Type: 
  Country: US (occurrence: US)
  Receive Date: 20120924
  Receipt Date: 20120924
  Transmission Date: 20130627
  Serious: Yes (Other)
  Sender: FDA-Public Use
  Company Number: US-PFIZER INC-2012233000

PATIENT
  Age: 70 Year
  Sex: Female
  Weight: 122 kg

DRUGS (3)
  1. TOVIAZ [Suspect]
     Indication: BLADDER DISORDER
     Dosage: 8 mg, 1x/day
     Route: 048
     Dates: end: 20120918
  2. ASPIRIN [Concomitant]
     Indication: ATRIAL FIBRILLATION
     Dosage: UNK
  3. COUMADIN [Concomitant]
     Indication: ATRIAL FIBRILLATION
     Dosage: UNK

REACTIONS (1)
  - Oedema peripheral [Not Recovered/Not Resolved]
